FAERS Safety Report 9052964 (Version 2)
Quarter: 2013Q1

REPORT INFORMATION
  Report Type: Spontaneous
  Country: JP (occurrence: JP)
  Receive Date: 20130208
  Receipt Date: 20130306
  Transmission Date: 20140127
  Serious: Yes (Death)
  Sender: FDA-Public Use
  Company Number: JP-009507513-1302JPN002551

PATIENT
  Age: 76 Year
  Sex: Male
  Weight: 55 kg

DRUGS (8)
  1. STROMECTOL [Suspect]
     Indication: ACARODERMATITIS
     Dosage: 9 MG, QD
     Route: 048
     Dates: start: 20130116, end: 20130116
  2. STROMECTOL [Suspect]
     Dosage: 9 MG, QD
     Route: 048
     Dates: start: 20130124, end: 20130124
  3. STROMECTOL [Suspect]
     Dosage: 9 MG, QD
     Route: 048
     Dates: start: 20130131, end: 20130131
  4. ALLEGRA [Concomitant]
     Indication: PRURITUS
     Dosage: 2 DF, BID
     Route: 048
     Dates: start: 20130106, end: 20130131
  5. MAGLAX [Concomitant]
     Indication: CONSTIPATION
     Dosage: 250 MG, TID
     Route: 048
  6. BIOFORMIN [Concomitant]
     Indication: CONSTIPATION
     Dosage: DAILY DOSAGE UNKNOWN
     Route: 048
  7. BLADDERON [Concomitant]
     Dosage: DAILY DOSAGE UNKNOWN
     Route: 065
  8. TAMSULOSIN HYDROCHLORIDE [Concomitant]
     Dosage: DAILY DOSAGE UNKNOWN
     Route: 065

REACTIONS (3)
  - Interstitial lung disease [Fatal]
  - Cardio-respiratory arrest [None]
  - Mycoplasma test positive [None]
